FAERS Safety Report 17928595 (Version 1)
Quarter: 2020Q2

REPORT INFORMATION
  Report Type: Spontaneous
  Country: US (occurrence: US)
  Receive Date: 20200622
  Receipt Date: 20200622
  Transmission Date: 20200714
  Serious: Yes (Life-Threatening, Hospitalization)
  Sender: FDA-Public Use
  Company Number: None

PATIENT
  Age: 59 Year
  Sex: Male
  Weight: 68 kg

DRUGS (1)
  1. PEMBROLIZUMAB. [Suspect]
     Active Substance: PEMBROLIZUMAB
     Indication: MALIGNANT MELANOMA
     Route: 042
     Dates: start: 20200506, end: 20200527

REACTIONS (5)
  - Respiratory failure [None]
  - Dysphagia [None]
  - Asthenia [None]
  - Visual impairment [None]
  - Eyelid ptosis [None]

NARRATIVE: CASE EVENT DATE: 20200610
